FAERS Safety Report 8183956-3 (Version None)
Quarter: 2012Q1

REPORT INFORMATION
  Report Type: 
  Country: None (occurrence: None)
  Receive Date: 20120305
  Receipt Date: 20120227
  Transmission Date: 20120608
  Serious: Yes (Hospitalization, Other)
  Sender: FDA-Public Use
  Company Number: US-PFIZER INC-2012016097

PATIENT
  Sex: Female

DRUGS (3)
  1. ERBITUX [Concomitant]
     Dosage: UNK
  2. AVASTIN [Concomitant]
     Dosage: UNK
  3. CAMPTOSAR [Suspect]
     Indication: RECTAL CANCER METASTATIC
     Dosage: 150 MG/M2, Q 21 DAYS
     Route: 042
     Dates: start: 20111003, end: 20111129

REACTIONS (2)
  - DEHYDRATION [None]
  - DIARRHOEA [None]
